FAERS Safety Report 10064008 (Version 1)
Quarter: 2014Q2

REPORT INFORMATION
  Report Type: Report from Study
  Country: US (occurrence: US)
  Receive Date: 20140408
  Receipt Date: 20140408
  Transmission Date: 20141212
  Serious: Yes (Hospitalization, Other)
  Sender: FDA-Public Use
  Company Number: US-ROCHE-1373292

PATIENT
  Age: 5 Year
  Sex: Male
  Weight: 22.27 kg

DRUGS (13)
  1. NUTROPIN AQ [Suspect]
     Indication: HYPOPITUITARISM
     Route: 058
  2. PROVENTIL [Concomitant]
     Route: 065
  3. POLYVISOL [Concomitant]
     Dosage: DROPS.
     Route: 048
  4. CETRIZINE [Concomitant]
     Route: 048
  5. PRECOSE [Concomitant]
     Route: 048
  6. SYNTHROID [Concomitant]
     Route: 048
  7. ADVAIR HFA [Concomitant]
     Route: 065
  8. REGLAN [Concomitant]
     Route: 048
  9. ZANTAC [Concomitant]
     Dosage: SYRUP.
     Route: 048
  10. FLORINEF [Concomitant]
     Route: 048
  11. SOLU-CORTEF [Concomitant]
     Route: 065
  12. CORTEF [Concomitant]
     Route: 048
  13. LANCETS [Concomitant]

REACTIONS (6)
  - Urine output decreased [Unknown]
  - Orchidectomy [Unknown]
  - Cholecystectomy [Unknown]
  - Gastrostomy [Unknown]
  - Hypoglycaemia [Unknown]
  - Abdominal distension [Unknown]
